FAERS Safety Report 13642448 (Version 2)
Quarter: 2018Q2

REPORT INFORMATION
  Report Type: Spontaneous
  Country: US (occurrence: US)
  Receive Date: 20170612
  Receipt Date: 20180612
  Transmission Date: 20180711
  Serious: No
  Sender: FDA-Public Use
  Company Number: US-SEPTODONT-201603503

PATIENT
  Age: 24 Year
  Sex: Female
  Weight: 59 kg

DRUGS (1)
  1. SEPTOCAINE AND EPINEPHRINE [Suspect]
     Active Substance: ARTICAINE HYDROCHLORIDE\EPINEPHRINE BITARTRATE
     Indication: LOCAL ANAESTHESIA
     Dosage: ADMINISTERED VIA CONVENTIONAL INFILTRATIVE TECHNIQUE APICAL TO TEETH.
     Route: 004
     Dates: start: 20160711, end: 20160711

REACTIONS (3)
  - Procedural pain [Unknown]
  - Exposure during pregnancy [Unknown]
  - Procedural headache [Unknown]

NARRATIVE: CASE EVENT DATE: 201607
